FAERS Safety Report 19069995 (Version 1)
Quarter: 2021Q1

REPORT INFORMATION
  Report Type: Not Available
  Country: PH (occurrence: None)
  Receive Date: 20210329
  Receipt Date: 20210329
  Transmission Date: 20210420
  Serious: Yes (Hospitalization, Other)
  Sender: FDA-Public Use
  Company Number: NL-AKORN-164384

PATIENT
  Age: 61 Year
  Sex: Female

DRUGS (1)
  1. MOXIFLOXACIN OPHTHALMIC SOLUTION, USP 0.5% STERILE 3 ML [Suspect]
     Active Substance: MOXIFLOXACIN

REACTIONS (2)
  - Conjunctivitis [None]
  - Stevens-Johnson syndrome [None]
